FAERS Safety Report 9454675 (Version 2)
Quarter: 2013Q3

REPORT INFORMATION
  Report Type: Spontaneous
  Country: IT (occurrence: IT)
  Receive Date: 20130812
  Receipt Date: 20130815
  Transmission Date: 20140515
  Serious: Yes (Hospitalization)
  Sender: FDA-Public Use
  Company Number: PHHY2013IT084473

PATIENT
  Sex: Female

DRUGS (7)
  1. TEGRETOL [Suspect]
     Indication: TRIGEMINAL NEURALGIA
     Dosage: 1 POSOLOGIC UNIT, DAILY
     Route: 048
     Dates: start: 20130501, end: 20130707
  2. FUROSEMIDE [Suspect]
     Indication: MYOCARDIAL ISCHAEMIA
     Dosage: 12.5 MG, DAILY
     Route: 048
     Dates: start: 20130101, end: 20130707
  3. FUROSEMIDE [Suspect]
     Dosage: UNK UKN, UNK
  4. CONGESCOR [Concomitant]
     Dosage: UNK UKN, UNK
  5. DUOPLAVIN [Concomitant]
     Dosage: UNK UKN, UNK
  6. CARDIOASPIRIN [Concomitant]
     Dosage: UNK UKN, UNK
  7. EUTIROX [Concomitant]
     Dosage: UNK UKN, UNK

REACTIONS (1)
  - Syncope [Unknown]
